FAERS Safety Report 6083061-6 (Version None)
Quarter: 2009Q1

REPORT INFORMATION
  Report Type: 
  Country: None (occurrence: None)
  Receive Date: 20090218
  Receipt Date: 20090212
  Transmission Date: 20090719
  Serious: Yes (Other)
  Sender: FDA-Public Use
  Company Number: ES-MERCK-0902ESP00026

PATIENT
  Age: 66 Year
  Sex: Female

DRUGS (7)
  1. ZETIA [Suspect]
     Indication: HYPERCHOLESTEROLAEMIA
     Route: 048
     Dates: start: 20081125, end: 20081130
  2. DIOSMIN AND HESPERIDIN [Concomitant]
     Indication: VARICOSE VEIN
     Route: 048
     Dates: start: 20070701
  3. OMEPRAZOLE [Concomitant]
     Indication: PROPHYLAXIS AGAINST GASTROINTESTINAL ULCER
     Route: 048
  4. PREGABALIN [Concomitant]
     Route: 048
     Dates: start: 20080901
  5. FUROSEMIDE [Concomitant]
     Indication: POST PROCEDURAL OEDEMA
     Route: 048
     Dates: start: 20080301
  6. ACENOCOUMAROL [Suspect]
     Indication: POSTOPERATIVE THROMBOSIS
     Route: 048
     Dates: start: 20080501
  7. DICLOFENAC SODIUM [Concomitant]
     Indication: PERIPHERAL NERVE INJURY
     Route: 048
     Dates: start: 20080801

REACTIONS (2)
  - COAGULOPATHY [None]
  - DRUG INTERACTION [None]
